FAERS Safety Report 14313679 (Version 2)
Quarter: 2018Q1

REPORT INFORMATION
  Report Type: Spontaneous
  Country: FR (occurrence: FR)
  Receive Date: 20171221
  Receipt Date: 20180227
  Transmission Date: 20180509
  Serious: Yes (Hospitalization)
  Sender: FDA-Public Use
  Company Number: FR-PURDUE PHARMA-GBR-2017-0051652

PATIENT
  Age: 42 Year
  Sex: Female

DRUGS (2)
  1. NON-PMN BUPRENORPHINE [Suspect]
     Active Substance: BUPRENORPHINE
     Indication: DRUG ABUSE
     Dosage: UNK
     Route: 048
     Dates: start: 2008
  2. HEROIN [Suspect]
     Active Substance: DIAMORPHINE
     Indication: DRUG ABUSE
     Route: 048

REACTIONS (2)
  - Nephropathy [Unknown]
  - Drug abuse [Unknown]

NARRATIVE: CASE EVENT DATE: 2008
